FAERS Safety Report 4461470-6 (Version None)
Quarter: 2004Q3

REPORT INFORMATION
  Report Type: 
  Country: None (occurrence: None)
  Receive Date: 20040920
  Receipt Date: 20040903
  Transmission Date: 20050211
  Serious: Yes (Life-Threatening)
  Sender: FDA-Public Use
  Company Number: 601545

PATIENT
  Age: 29 Year
  Sex: Female
  Weight: 57.6068 kg

DRUGS (8)
  1. TISSEEL VH KIT [Suspect]
     Indication: ABDOMINOPLASTY
     Dosage: 1 ML; ONCE
     Dates: start: 20040903, end: 20040903
  2. PROPOPHAL [Concomitant]
  3. LIDOCAINE [Concomitant]
  4. FENTANYL [Concomitant]
  5. SEVOFLURANE [Concomitant]
  6. DECADRON [Concomitant]
  7. ANCEF [Concomitant]
  8. ZOFRAN [Concomitant]

REACTIONS (3)
  - ABDOMINAL RIGIDITY [None]
  - BODY TEMPERATURE DECREASED [None]
  - HYPOVENTILATION [None]
